FAERS Safety Report 24401566 (Version 2)
Quarter: 2024Q4

REPORT INFORMATION
  Report Type: Spontaneous
  Country: US (occurrence: US)
  Receive Date: 20241007
  Receipt Date: 20241016
  Transmission Date: 20250115
  Serious: No
  Sender: AMGEN
  Company Number: US-AMGEN-USASP2024194689

PATIENT
  Age: 73 Year
  Sex: Female
  Weight: 49.887 kg

DRUGS (5)
  1. PROLIA [Suspect]
     Active Substance: DENOSUMAB
     Indication: Osteoporosis
     Dosage: 60 MILLIGRAM, Q6MO
     Route: 058
  2. POTASSIUM [Concomitant]
     Active Substance: POTASSIUM
  3. ZINC [Concomitant]
     Active Substance: ZINC
  4. CALCIUM [Concomitant]
     Active Substance: CALCIUM
  5. JOINT SUPPORT FORMULA [Concomitant]

REACTIONS (4)
  - Toothache [Not Recovered/Not Resolved]
  - COVID-19 [Unknown]
  - Tooth fracture [Unknown]
  - Hyperaesthesia teeth [Not Recovered/Not Resolved]

NARRATIVE: CASE EVENT DATE: 20240101
